FAERS Safety Report 14744742 (Version 1)
Quarter: 2018Q2

REPORT INFORMATION
  Report Type: Spontaneous
  Country: FR (occurrence: FR)
  Receive Date: 20180411
  Receipt Date: 20180411
  Transmission Date: 20180711
  Serious: Yes (Other)
  Sender: FDA-Public Use
  Company Number: FR-MERCK KGAA-2045509

PATIENT
  Age: 60 Year
  Sex: Female

DRUGS (3)
  1. LEVOTHYROX [Suspect]
     Active Substance: LEVOTHYROXINE
     Dates: start: 201704, end: 201709
  2. NOVOTHYROX [Suspect]
     Active Substance: LEVOTHYROXINE SODIUM
     Indication: AUTOIMMUNE THYROIDITIS
     Dates: start: 201704, end: 201709
  3. NOVOTHYROX [Suspect]
     Active Substance: LEVOTHYROXINE SODIUM
     Dates: start: 201709

REACTIONS (19)
  - Depression [Recovering/Resolving]
  - Asthenia [Recovering/Resolving]
  - Back pain [Recovered/Resolved]
  - Swelling [Recovering/Resolving]
  - Anger [Recovering/Resolving]
  - Sleep terror [Recovering/Resolving]
  - Muscle spasms [Recovered/Resolved]
  - Loss of personal independence in daily activities [None]
  - Rectal haemorrhage [Recovering/Resolving]
  - Clumsiness [None]
  - Anxiety [None]
  - Scleroderma [None]
  - Motor dysfunction [None]
  - Fatigue [Recovering/Resolving]
  - Dysgeusia [Recovering/Resolving]
  - Muscular weakness [None]
  - Hypersensitivity [Recovering/Resolving]
  - Mobility decreased [Recovering/Resolving]
  - Alopecia [Recovering/Resolving]

NARRATIVE: CASE EVENT DATE: 201704
